FAERS Safety Report 10215875 (Version 3)
Quarter: 2014Q3

REPORT INFORMATION
  Report Type: Spontaneous
  Country: IT (occurrence: IT)
  Receive Date: 20140604
  Receipt Date: 20140806
  Transmission Date: 20150326
  Serious: Yes (Hospitalization)
  Sender: FDA-Public Use
  Company Number: IT-ELI_LILLY_AND_COMPANY-IT201405007783

PATIENT
  Age: 74 Year
  Sex: Female

DRUGS (11)
  1. CARVEDILOL ACTAVIS [Concomitant]
     Dosage: UNK
     Route: 048
     Dates: start: 20130423, end: 20140520
  2. CARDIOASPIRIN [Concomitant]
     Active Substance: ASPIRIN
     Dosage: UNK
     Route: 048
     Dates: start: 20130423, end: 20140520
  3. COUMADIN [Concomitant]
     Active Substance: WARFARIN SODIUM
     Dosage: UNK
     Route: 048
     Dates: start: 20130423, end: 20140520
  4. TRIATEC [Concomitant]
     Active Substance: RAMIPRIL
     Dosage: UNK
     Route: 048
     Dates: start: 20130423, end: 20140520
  5. LANTUS [Suspect]
     Active Substance: INSULIN GLARGINE
     Indication: TYPE 1 DIABETES MELLITUS
     Dosage: 100 DF, QD
     Route: 058
     Dates: start: 20130423
  6. NITRO-DUR [Concomitant]
     Active Substance: NITROGLYCERIN
     Dosage: 10 MG, QD
     Route: 062
     Dates: start: 20130423, end: 20140520
  7. HUMALOG [Suspect]
     Active Substance: INSULIN LISPRO
     Indication: TYPE 1 DIABETES MELLITUS
     Dosage: 15 DF, QD
     Route: 058
     Dates: start: 20130423
  8. LASIX [Concomitant]
     Active Substance: FUROSEMIDE
     Dosage: UNK
     Route: 048
     Dates: start: 20130423, end: 20140520
  9. CRESTOR [Concomitant]
     Active Substance: ROSUVASTATIN CALCIUM
     Dosage: UNK
     Route: 048
     Dates: start: 20130423, end: 20140520
  10. LUVION [Concomitant]
     Active Substance: CANRENONE
     Dosage: UNK
     Route: 048
     Dates: start: 20130423, end: 20140520
  11. NITRODERM [Concomitant]
     Active Substance: NITROGLYCERIN
     Dosage: 10 MG, QD
     Route: 062
     Dates: start: 20130423, end: 20140520

REACTIONS (1)
  - Hypoglycaemia [Recovered/Resolved]

NARRATIVE: CASE EVENT DATE: 20130707
